FAERS Safety Report 20263242 (Version 3)
Quarter: 2022Q2

REPORT INFORMATION
  Report Type: Report from Study
  Country: CA (occurrence: CA)
  Receive Date: 20211231
  Receipt Date: 20220425
  Transmission Date: 20220720
  Serious: Yes (Other)
  Sender: FDA-Public Use
  Company Number: CA-JNJFOC-20211249397

PATIENT
  Age: 63 Year
  Sex: Female

DRUGS (8)
  1. SELEXIPAG [Suspect]
     Active Substance: SELEXIPAG
     Indication: Pulmonary hypertension
     Route: 048
     Dates: start: 20211103
  2. SELEXIPAG [Suspect]
     Active Substance: SELEXIPAG
     Route: 048
     Dates: start: 20211103
  3. SELEXIPAG [Suspect]
     Active Substance: SELEXIPAG
     Route: 048
  4. MACITENTAN [Suspect]
     Active Substance: MACITENTAN
     Indication: Pulmonary hypertension
     Route: 048
     Dates: start: 20210325
  5. ADCIRCA [Concomitant]
     Active Substance: TADALAFIL
  6. FUROSEMIDE [Concomitant]
     Active Substance: FUROSEMIDE
  7. VITAMIN K [Concomitant]
     Active Substance: PHYTONADIONE
  8. ERGOCALCIFEROL [Concomitant]
     Active Substance: ERGOCALCIFEROL

REACTIONS (3)
  - Hypotension [Recovering/Resolving]
  - Fatigue [Not Recovered/Not Resolved]
  - Somnolence [Recovering/Resolving]
